FAERS Safety Report 13545612 (Version 3)
Quarter: 2017Q3

REPORT INFORMATION
  Report Type: Spontaneous
  Country: US (occurrence: US)
  Receive Date: 20170515
  Receipt Date: 20170803
  Transmission Date: 20171127
  Serious: No
  Sender: FDA-Public Use
  Company Number: US-PFIZER INC-2017210645

PATIENT
  Age: 67 Year
  Sex: Female
  Weight: 64.86 kg

DRUGS (8)
  1. IBRANCE [Suspect]
     Active Substance: PALBOCICLIB
     Indication: BREAST CANCER METASTATIC
     Dosage: 125 MG, CYCLIC (DAILY BY MOUTH, TAKE FOR 21 DAYS THEN OFF FOR 7 DAYS)
     Route: 048
     Dates: end: 20170507
  2. FASLODEX [Concomitant]
     Active Substance: FULVESTRANT
     Indication: HORMONE THERAPY
     Dosage: UNK, CYCLIC (FIRST INJECTION 17APR2017, SECOND ON 02MAY2017, 3RD ON 18MAY2017, THEN ONCE A MONTH)
     Dates: start: 20170417
  3. SYMBICORT [Concomitant]
     Active Substance: BUDESONIDE\FORMOTEROL FUMARATE DIHYDRATE
     Indication: ASTHMA
     Dosage: 2X/DAY BUDESONIDE160]/ [FORMOTEROL FUMARATE4.5], 2 PUFFS
     Dates: start: 201501
  4. IBRANCE [Suspect]
     Active Substance: PALBOCICLIB
     Indication: INVASIVE LOBULAR BREAST CARCINOMA
     Dosage: 125 MG, CYCLIC (DAILY BY MOUTH, TAKE FOR 21 DAYS THEN OFF FOR 7 DAYS)
     Route: 048
     Dates: start: 20170417
  5. LEVOTHYROXINE. [Concomitant]
     Active Substance: LEVOTHYROXINE
     Indication: THYROID DISORDER
     Dosage: 75 UG, 1X/DAY
  6. XGEVA [Concomitant]
     Active Substance: DENOSUMAB
     Indication: BONE DISORDER
     Dosage: UNK, CYCLIC (FIRST INJECTION 17APR2017, SECOND ON 02MAY2017, NEXT 31MAY2017, THEN ONCE A MONTH)
     Dates: start: 20170417
  7. LISINOPRIL. [Concomitant]
     Active Substance: LISINOPRIL
     Indication: HYPERTENSION
     Dosage: 10 MG, 1X/DAY
  8. SIMVASTATIN. [Concomitant]
     Active Substance: SIMVASTATIN
     Indication: BLOOD CHOLESTEROL ABNORMAL
     Dosage: 40 MG, 1X/DAY

REACTIONS (2)
  - White blood cell count decreased [Not Recovered/Not Resolved]
  - Platelet count decreased [Not Recovered/Not Resolved]

NARRATIVE: CASE EVENT DATE: 20170501
